FAERS Safety Report 21418016 (Version 1)
Quarter: 2022Q4

REPORT INFORMATION
  Report Type: Spontaneous
  Country: KR (occurrence: KR)
  Receive Date: 20221006
  Receipt Date: 20221006
  Transmission Date: 20230112
  Serious: Yes (Other)
  Sender: FDA-Public Use
  Company Number: KR-GLAXOSMITHKLINE-KR2022APC140200

PATIENT

DRUGS (1)
  1. ANORO ELLIPTA [Suspect]
     Active Substance: UMECLIDINIUM BROMIDE\VILANTEROL TRIFENATATE
     Indication: Obstruction
     Dosage: QD (ONCE A DAY BEFORE MEAL)

REACTIONS (10)
  - Glaucoma [Unknown]
  - Cataract [Unknown]
  - Haematochezia [Unknown]
  - Drug hypersensitivity [Unknown]
  - Urinary tract disorder [Unknown]
  - Constipation [Unknown]
  - Amnesia [Unknown]
  - Blood glucose increased [Unknown]
  - Haemoptysis [Unknown]
  - Deafness [Unknown]
